FAERS Safety Report 15568617 (Version 1)
Quarter: 2018Q4

REPORT INFORMATION
  Report Type: Other
  Country: US (occurrence: US)
  Receive Date: 20181031
  Receipt Date: 20181031
  Transmission Date: 20190205
  Serious: Yes (Other)
  Sender: FDA-Public Use
  Company Number: US-APPCO PHARMA LLC-2058249

PATIENT
  Age: 59 Year
  Sex: Male

DRUGS (1)
  1. VORICONAZOLE. [Suspect]
     Active Substance: VORICONAZOLE
     Indication: ASPERGILLUS INFECTION
     Route: 065

REACTIONS (1)
  - Subacute cutaneous lupus erythematosus [Recovered/Resolved]
